FAERS Safety Report 10050432 (Version 2)
Quarter: 2014Q2

REPORT INFORMATION
  Report Type: Spontaneous
  Country: US (occurrence: US)
  Receive Date: 20140401
  Receipt Date: 20140613
  Transmission Date: 20141212
  Serious: Yes (Other)
  Sender: FDA-Public Use
  Company Number: US-PFIZER INC-2014089038

PATIENT
  Age: 50 Year
  Sex: Male
  Weight: 63.49 kg

DRUGS (2)
  1. SILDENAFIL CITRATE [Suspect]
     Indication: PULMONARY HYPERTENSION
     Dosage: 30 MG (ONE AND A HALF TABLET OF 20MG), 3X/DAY
     Route: 048
     Dates: start: 20140307, end: 20140307
  2. SILDENAFIL CITRATE [Suspect]
     Dosage: 20 MG, 2X/DAY
     Route: 048
     Dates: start: 20140308, end: 201403

REACTIONS (5)
  - Cardiac failure [Recovered/Resolved]
  - Palpitations [Recovered/Resolved]
  - Fatigue [Recovered/Resolved]
  - Fluid retention [Recovered/Resolved]
  - Heart rate abnormal [Recovered/Resolved]
